FAERS Safety Report 24128782 (Version 2)
Quarter: 2024Q3

REPORT INFORMATION
  Report Type: Spontaneous
  Country: DE (occurrence: DE)
  Receive Date: 20240723
  Receipt Date: 20240827
  Transmission Date: 20241017
  Serious: Yes (Life-Threatening, Hospitalization)
  Sender: SANDOZ
  Company Number: DE-ROCHE-10000014368

PATIENT
  Age: 75 Year
  Sex: Male
  Weight: 76 kg

DRUGS (10)
  1. FLUOROURACIL [Suspect]
     Active Substance: FLUOROURACIL
     Indication: Oesophageal adenocarcinoma
     Dosage: 2600 MG/M2, BIW, LAST DOSE GIVEN BEFORE AE ONSET ON 24/JUN/2024DOSE GIVEN BEFORE ONSET OF AE- 5000 M
     Route: 042
     Dates: start: 20240610
  2. FLUOROURACIL [Suspect]
     Active Substance: FLUOROURACIL
     Dosage: 5000 MG/M2, BIW, LAST DOSE GIVEN BEFORE AE ONSET ON 24/JUN/2024
     Route: 042
  3. ATEZOLIZUMAB [Suspect]
     Active Substance: ATEZOLIZUMAB
     Indication: Oesophageal adenocarcinoma
     Dosage: 840 MG, TIW, LAST DOSE GIVEN BEFORE AE ONSET ON 24/JUN/2024DOSE GIVEN BEFORE ONSET OF AE- 840 MG
     Route: 042
     Dates: start: 20240610
  4. DOCETAXEL [Suspect]
     Active Substance: DOCETAXEL\DOCETAXEL ANHYDROUS
     Indication: Oesophageal adenocarcinoma
     Dosage: 50 MG/M2, BIW,LAST DOSE GIVEN BEFORE AE ONSET ON 24/JUN/2024DOSE GIVEN BEFORE ONSET OF AE- 96 MG
     Route: 042
     Dates: start: 20240610
  5. DOCETAXEL [Suspect]
     Active Substance: DOCETAXEL\DOCETAXEL ANHYDROUS
     Dosage: 96 MG/M2, BIW, LAST DOSE GIVEN BEFORE AE ONSET ON 24/JUN/2024
     Route: 042
  6. LEUCOVORIN [Suspect]
     Active Substance: LEUCOVORIN\LEUCOVORIN CALCIUM
     Dosage: 380 MG/M2, LAST DOSE GIVEN BEFORE AE ONSET ON 24/JUN/2024
     Route: 042
  7. LEUCOVORIN [Suspect]
     Active Substance: LEUCOVORIN\LEUCOVORIN CALCIUM
     Indication: Oesophageal adenocarcinoma
     Dosage: 200 MG/M2, BIW, LAST DOSE GIVEN BEFORE AE ONSET ON 24/JUN/2024DOSE GIVEN BEFORE ONSET OF AE- 380 MG
     Route: 042
     Dates: start: 20240610
  8. OXALIPLATIN [Suspect]
     Active Substance: OXALIPLATIN
     Dosage: 160 MG/M2, BIW, LAST DOSE GIVEN BEFORE AE ONSET ON 24/JUN/2024
     Route: 042
  9. OXALIPLATIN [Suspect]
     Active Substance: OXALIPLATIN
     Indication: Oesophageal adenocarcinoma
     Dosage: 85 MG/M2, BIW, LAST DOSE GIVEN BEFORE AE ONSET ON 24/JUN/2024DOSE GIVEN BEFORE ONSET OF AE- 160 MG
     Route: 042
     Dates: start: 20240610
  10. PIPERACILLIN [Concomitant]
     Active Substance: PIPERACILLIN
     Indication: Product used for unknown indication
     Dosage: UNK
     Route: 065

REACTIONS (1)
  - Pyelonephritis [Recovered/Resolved]

NARRATIVE: CASE EVENT DATE: 20240628
